FAERS Safety Report 9642760 (Version 3)
Quarter: 2014Q2

REPORT INFORMATION
  Report Type: Spontaneous
  Country: US (occurrence: US)
  Receive Date: 20131024
  Receipt Date: 20140403
  Transmission Date: 20141212
  Serious: Yes (Other)
  Sender: FDA-Public Use
  Company Number: US-PERRIGO-13US010598

PATIENT
  Age: 61 Year
  Sex: Female
  Weight: 74.83 kg

DRUGS (10)
  1. NICOTINE 4 MG MINT 873 [Suspect]
     Indication: SMOKING CESSATION THERAPY
     Dosage: 4MG,  5 TO 6  TIMES A DAY
     Route: 002
     Dates: start: 201301, end: 201304
  2. LOSARTAN [Concomitant]
     Indication: HYPERTENSION
     Dosage: UNK
     Route: 065
  3. SIMVASTATIN [Concomitant]
     Indication: BLOOD CHOLESTEROL INCREASED
     Dosage: UNK
     Route: 065
  4. WELLBUTRIN [Concomitant]
     Indication: DEPRESSION
     Dosage: UNK
     Route: 065
  5. CELEXA [Concomitant]
     Indication: DEPRESSION
     Dosage: UNK
     Route: 065
  6. ALBUTEROL [Concomitant]
     Indication: CHRONIC OBSTRUCTIVE PULMONARY DISEASE
     Dosage: NEBULIZER TX AND INHALER
     Route: 055
  7. VITAMINS NOS [Concomitant]
     Indication: SUPPLEMENTATION THERAPY
     Dosage: UNK
     Route: 065
  8. ADVAIR [Concomitant]
     Indication: CHRONIC OBSTRUCTIVE PULMONARY DISEASE
     Dosage: UNK
     Route: 065
  9. SPIRIVA [Concomitant]
     Indication: CHRONIC OBSTRUCTIVE PULMONARY DISEASE
     Dosage: UNK
     Route: 065
  10. PRILOSEC [Concomitant]
     Indication: GASTRIC DISORDER
     Dosage: UNK
     Route: 065

REACTIONS (3)
  - Polyp [Recovered/Resolved]
  - Dysphagia [Recovered/Resolved]
  - Underdose [Unknown]
